FAERS Safety Report 16854469 (Version 1)
Quarter: 2019Q3

REPORT INFORMATION
  Report Type: Spontaneous
  Country: ES (occurrence: ES)
  Receive Date: 20190926
  Receipt Date: 20190926
  Transmission Date: 20191005
  Serious: Yes (Other)
  Sender: FDA-Public Use
  Company Number: ES-TEVA-2019-ES-1112581

PATIENT
  Age: 67 Year
  Sex: Male

DRUGS (2)
  1. METAMIZOL (111A) [Concomitant]
     Active Substance: METAMIZOL SODIUM
     Route: 048
  2. LOSARTAN/HIDROCLOROTIAZIDA 100 MG/12,5 MG COMPRIMIDO [Suspect]
     Active Substance: HYDROCHLOROTHIAZIDE\LOSARTAN
     Indication: HYPERTENSION
     Dosage: 1 DOSAGE FORM/ 12 HOURS
     Route: 048
     Dates: start: 201908, end: 20190823

REACTIONS (2)
  - Incorrect dosage administered [Recovered/Resolved]
  - Acute kidney injury [Unknown]

NARRATIVE: CASE EVENT DATE: 201908
